FAERS Safety Report 9565453 (Version 1)
Quarter: 2013Q3

REPORT INFORMATION
  Report Type: Spontaneous
  Country: BE (occurrence: BE)
  Receive Date: 20130930
  Receipt Date: 20130930
  Transmission Date: 20140515
  Serious: Yes (Death, Hospitalization, Other)
  Sender: FDA-Public Use
  Company Number: BE-WATSON-2013-16814

PATIENT
  Age: 65 Year
  Sex: Female

DRUGS (2)
  1. VENLAFAXINE (UNKNOWN) [Suspect]
     Indication: OVERDOSE
     Dosage: 7000 MG, SINGLE
     Route: 048
  2. LORAZEPAM (UNKNOWN) [Suspect]
     Indication: OVERDOSE
     Dosage: 40 MG, SINGLE
     Route: 048

REACTIONS (5)
  - Cardiogenic shock [Fatal]
  - Rhythm idioventricular [Unknown]
  - Electrocardiogram QRS complex prolonged [Unknown]
  - Coma [Unknown]
  - Overdose [Unknown]
